FAERS Safety Report 7736152-5 (Version None)
Quarter: 2011Q3

REPORT INFORMATION
  Report Type: 
  Country: None (occurrence: None)
  Receive Date: 20110908
  Receipt Date: 20110829
  Transmission Date: 20111222
  Serious: Yes (Hospitalization, Other)
  Sender: FDA-Public Use
  Company Number: FR-JNJFOC-20110301556

PATIENT
  Sex: Male
  Weight: 76 kg

DRUGS (12)
  1. ONDANSETRON [Concomitant]
     Indication: PREMEDICATION
     Route: 065
  2. DOXORUBICIN HYDROCHLORIDE [Suspect]
     Route: 042
     Dates: start: 20110103, end: 20110103
  3. VELCADE [Suspect]
     Route: 042
     Dates: start: 20110121, end: 20110131
  4. DEXAMETHASONE [Concomitant]
     Route: 065
  5. PLAVIX [Concomitant]
     Route: 048
     Dates: start: 20000101
  6. NEXIUM [Concomitant]
     Route: 065
  7. DOXORUBICIN HYDROCHLORIDE [Suspect]
     Indication: MULTIPLE MYELOMA
     Route: 042
     Dates: start: 20110124, end: 20110124
  8. VELCADE [Suspect]
     Indication: MULTIPLE MYELOMA
     Route: 042
     Dates: start: 20101231, end: 20110110
  9. BISOPROLOL FUMARATE [Concomitant]
     Indication: HYPERTENSION
     Route: 048
     Dates: start: 20000101
  10. LYRICA [Concomitant]
     Indication: NEUROPATHY PERIPHERAL
     Route: 048
     Dates: start: 20110101
  11. DOXORUBICIN HYDROCHLORIDE [Suspect]
     Route: 042
     Dates: start: 20101213, end: 20101213
  12. VELCADE [Suspect]
     Route: 042
     Dates: start: 20101211, end: 20101220

REACTIONS (2)
  - URTICARIA [None]
  - PALMAR-PLANTAR ERYTHRODYSAESTHESIA SYNDROME [None]
